FAERS Safety Report 6227373-1 (Version None)
Quarter: 2009Q2

REPORT INFORMATION
  Report Type: 
  Country: None (occurrence: None)
  Receive Date: 20090610
  Receipt Date: 20090526
  Transmission Date: 20091009
  Serious: Yes (Hospitalization, Other)
  Sender: FDA-Public Use
  Company Number: 2009001465

PATIENT
  Age: 47 Year
  Sex: Female

DRUGS (23)
  1. ERLOTINIB (TABLET) [Suspect]
     Indication: PANCREATIC CARCINOMA METASTATIC
     Dosage: (50 MG, QD), ORAL
     Route: 048
     Dates: start: 20090330, end: 20090412
  2. ERLOTINIB (TABLET) [Suspect]
     Indication: PANCREATIC CARCINOMA METASTATIC
     Dosage: (50 MG, QD), ORAL
     Route: 048
     Dates: start: 20090421, end: 20090424
  3. ERLOTINIB (TABLET) [Suspect]
     Indication: PANCREATIC CARCINOMA METASTATIC
     Dosage: (50 MG, QD), ORAL
     Route: 048
     Dates: start: 20090427, end: 20090522
  4. GEMCITABINE [Suspect]
     Indication: PANCREATIC CARCINOMA METASTATIC
     Dosage: INTRAVENOUS
     Route: 042
     Dates: start: 20090320, end: 20090320
  5. GEMCITABINE [Suspect]
     Indication: PANCREATIC CARCINOMA METASTATIC
     Dosage: INTRAVENOUS
     Route: 042
     Dates: start: 20090421, end: 20090427
  6. ATRICAN (TENONITROZOLE) [Concomitant]
  7. BENZYDAMINE HCL [Concomitant]
  8. FAMOTIDINE [Concomitant]
  9. CLIOQUINOL AND HYDROCORTISOE CREAM [Concomitant]
  10. LOPERAMIDE HCL [Concomitant]
  11. LYSOZYME CHLORIDE [Concomitant]
  12. MAXOLON [Concomitant]
  13. MORPHINE SULPHATE SYRUP [Concomitant]
  14. MORPHINE SULFATE INJ [Concomitant]
  15. PREGABALIN [Concomitant]
  16. CHLORPHENIRAMINE MALEATE [Concomitant]
  17. LORAZEPAM [Concomitant]
  18. POTASSIUM CHLORIDE [Concomitant]
  19. PROCHLORPERAZIN [Concomitant]
  20. ESCITALOPRAM OXALATE [Concomitant]
  21. TENONITROZOLE (TENONITROZOLE) [Concomitant]
  22. HALOPERIDOL [Concomitant]
  23. MURAMIDASE HYDROCHLORIDE [Concomitant]

REACTIONS (19)
  - ABDOMINAL PAIN [None]
  - ACTIVATED PARTIAL THROMBOPLASTIN TIME SHORTENED [None]
  - ALANINE AMINOTRANSFERASE INCREASED [None]
  - ANHEDONIA [None]
  - ANOREXIA [None]
  - ASPARTATE AMINOTRANSFERASE INCREASED [None]
  - BILIRUBIN CONJUGATED INCREASED [None]
  - BLOOD ALKALINE PHOSPHATASE INCREASED [None]
  - BLOOD LACTATE DEHYDROGENASE INCREASED [None]
  - DEPRESSION [None]
  - GAMMA-GLUTAMYLTRANSFERASE INCREASED [None]
  - GASTROINTESTINAL HAEMORRHAGE [None]
  - GASTROINTESTINAL PAIN [None]
  - HAEMATEMESIS [None]
  - HYPOPHAGIA [None]
  - NAUSEA [None]
  - PROTHROMBIN TIME PROLONGED [None]
  - PROTHROMBIN TIME SHORTENED [None]
  - SUICIDE ATTEMPT [None]
